FAERS Safety Report 4543243-9 (Version None)
Quarter: 2004Q4

REPORT INFORMATION
  Report Type: 
  Country: None (occurrence: None)
  Receive Date: 20041229
  Receipt Date: 20041216
  Transmission Date: 20050328
  Serious: Yes (Death, Other)
  Sender: FDA-Public Use
  Company Number: GBR-2004-0001419

PATIENT
  Age: 77 Year
  Sex: Male

DRUGS (6)
  1. MORPHINE SULFATE [Suspect]
     Indication: PAIN
     Dosage: 200 MG, DAILY , ORAL
     Route: 048
     Dates: start: 20030524, end: 20030526
  2. PREVISCAN (FLUINDIONE) [Concomitant]
  3. MOTILIUM [Concomitant]
  4. PAROXETINE HCL [Concomitant]
  5. OMEPRAZOLE [Concomitant]
  6. TANAKAN (GINKGO BILOBA EXTRACT) [Concomitant]

REACTIONS (9)
  - CARDIAC DISORDER [None]
  - DECUBITUS ULCER [None]
  - HAEMODYNAMIC INSTABILITY [None]
  - HALLUCINATION [None]
  - LUNG DISORDER [None]
  - OVERDOSE [None]
  - PULMONARY CONGESTION [None]
  - SEPTIC SHOCK [None]
  - SOMNOLENCE [None]
